FAERS Safety Report 9124068 (Version 1)
Quarter: 2013Q1

REPORT INFORMATION
  Report Type: Spontaneous
  Country: US (occurrence: US)
  Receive Date: 20130116
  Receipt Date: 20130116
  Transmission Date: 20140127
  Serious: Yes (Other)
  Sender: FDA-Public Use
  Company Number: US-009507513-1007USA03933

PATIENT
  Age: 11 Year
  Sex: Male
  Weight: 35.38 kg

DRUGS (1)
  1. SINGULAIR [Suspect]
     Indication: ASTHMA
     Dosage: 1 DF, QD
     Route: 048
     Dates: start: 20000324, end: 20091210

REACTIONS (2)
  - Foot deformity [Unknown]
  - Hand deformity [Unknown]
